FAERS Safety Report 9417090 (Version 2)
Quarter: 2013Q3

REPORT INFORMATION
  Report Type: Spontaneous
  Country: JP (occurrence: JP)
  Receive Date: 20130724
  Receipt Date: 20130903
  Transmission Date: 20140515
  Serious: Yes (Other)
  Sender: FDA-Public Use
  Company Number: JP-PFIZER INC-2013214926

PATIENT
  Age: 39 Year
  Sex: Female

DRUGS (3)
  1. LYRICA [Suspect]
     Indication: NEURALGIA
     Dosage: 300 MG, DAILY
     Route: 048
  2. LYRICA [Suspect]
     Dosage: 150 MG/DAY
     Route: 048
  3. LYRICA [Suspect]
     Dosage: 75 MG/DAY

REACTIONS (1)
  - Lymphadenectomy [Recovered/Resolved]
